FAERS Safety Report 9738612 (Version 3)
Quarter: 2014Q1

REPORT INFORMATION
  Report Type: Spontaneous
  Country: US (occurrence: US)
  Receive Date: 20131209
  Receipt Date: 20140127
  Transmission Date: 20141002
  Serious: Yes (Hospitalization, Other)
  Sender: FDA-Public Use
  Company Number: US-BIOGENIDEC-2013BI107759

PATIENT
  Age: 35 Year
  Sex: Female

DRUGS (6)
  1. TYSABRI [Suspect]
     Indication: MULTIPLE SCLEROSIS
     Route: 042
     Dates: start: 20101111, end: 20130503
  2. NOVOLOG [Concomitant]
  3. VITAMIN B12 [Concomitant]
  4. AMBIEN [Concomitant]
  5. GABAPENTIN [Concomitant]
  6. LIPITOR [Concomitant]

REACTIONS (2)
  - Pre-eclampsia [Recovered/Resolved]
  - Premature labour [Recovered/Resolved]
